FAERS Safety Report 12610088 (Version 1)
Quarter: 2016Q3

REPORT INFORMATION
  Report Type: Spontaneous
  Country: US (occurrence: None)
  Receive Date: 20160729
  Receipt Date: 20160729
  Transmission Date: 20161109
  Serious: No
  Sender: FDA-Public Use
  Company Number: None

PATIENT
  Age: 37 Year
  Sex: Female
  Weight: 86.18 kg

DRUGS (5)
  1. TANZEUM [Suspect]
     Active Substance: ALBIGLUTIDE
     Indication: DIABETES MELLITUS
     Dosage: 1 INJECTION(S) GIVEN INTO/UNDER THE SKIN
     Dates: start: 20160425, end: 20160728
  2. VYTORIN [Concomitant]
     Active Substance: EZETIMIBE\SIMVASTATIN
  3. VALSARTIAN [Concomitant]
  4. FISH OIL [Concomitant]
     Active Substance: FISH OIL
  5. TANZEUM [Concomitant]
     Active Substance: ALBIGLUTIDE

REACTIONS (2)
  - Pruritus [None]
  - Injection site reaction [None]

NARRATIVE: CASE EVENT DATE: 20160718
